FAERS Safety Report 18863086 (Version 1)
Quarter: 2021Q1

REPORT INFORMATION
  Report Type: Spontaneous
  Country: US (occurrence: US)
  Receive Date: 20210209
  Receipt Date: 20210209
  Transmission Date: 20210420
  Serious: Yes (Other)
  Sender: FDA-Public Use
  Company Number: US-BEH-2021127951

PATIENT
  Sex: Female

DRUGS (4)
  1. VITAMIN B12 + FOLIC ACID [Concomitant]
     Active Substance: CYANOCOBALAMIN\FOLIC ACID
     Dosage: 2000 MICROGRAM
  2. HYDROCODONE [Concomitant]
     Active Substance: HYDROCODONE
     Dosage: 7.5?325M
  3. HIZENTRA [Suspect]
     Active Substance: HUMAN IMMUNOGLOBULIN G
     Indication: CHRONIC INFLAMMATORY DEMYELINATING POLYRADICULONEUROPATHY
     Dosage: 10 GRAM, BIW
     Route: 058
     Dates: start: 202007
  4. HIZENTRA [Suspect]
     Active Substance: HUMAN IMMUNOGLOBULIN G
     Dosage: UNK
     Route: 058

REACTIONS (1)
  - Drug ineffective [Recovered/Resolved]
